FAERS Safety Report 5413817-1 (Version None)
Quarter: 2007Q3

REPORT INFORMATION
  Report Type: 
  Country: None (occurrence: None)
  Receive Date: 20070814
  Receipt Date: 20060913
  Transmission Date: 20080115
  Serious: No
  Sender: FDA-Public Use
  Company Number: US-BRISTOL-MYERS SQUIBB COMPANY-13508148

PATIENT
  Sex: Male

DRUGS (2)
  1. REYATAZ [Suspect]
  2. PERMAX [Interacting]
     Dates: end: 20060914

REACTIONS (4)
  - BLOOD CREATINE PHOSPHOKINASE INCREASED [None]
  - DRUG INTERACTION [None]
  - LIPOATROPHY [None]
  - MYOPATHY [None]
